FAERS Safety Report 25817176 (Version 1)
Quarter: 2025Q3

REPORT INFORMATION
  Report Type: Spontaneous
  Country: EU (occurrence: EU)
  Receive Date: 20250918
  Receipt Date: 20250918
  Transmission Date: 20251020
  Serious: Yes (Life-Threatening, Hospitalization, Other)
  Sender: MYLAN
  Company Number: EU-MYLANLABS-2025M1079120

PATIENT
  Age: 55 Year
  Sex: Male

DRUGS (16)
  1. ATORVASTATIN [Suspect]
     Active Substance: ATORVASTATIN
     Indication: Product used for unknown indication
  2. ATORVASTATIN [Suspect]
     Active Substance: ATORVASTATIN
  3. ATORVASTATIN [Suspect]
     Active Substance: ATORVASTATIN
     Route: 065
  4. ATORVASTATIN [Suspect]
     Active Substance: ATORVASTATIN
     Route: 065
  5. ATORVASTATIN [Suspect]
     Active Substance: ATORVASTATIN
  6. ATORVASTATIN [Suspect]
     Active Substance: ATORVASTATIN
  7. ATORVASTATIN [Suspect]
     Active Substance: ATORVASTATIN
     Route: 065
  8. ATORVASTATIN [Suspect]
     Active Substance: ATORVASTATIN
     Route: 065
  9. PERINDOPRIL [Suspect]
     Active Substance: PERINDOPRIL
     Indication: Product used for unknown indication
  10. PERINDOPRIL [Suspect]
     Active Substance: PERINDOPRIL
     Route: 065
  11. PERINDOPRIL [Suspect]
     Active Substance: PERINDOPRIL
     Route: 065
  12. PERINDOPRIL [Suspect]
     Active Substance: PERINDOPRIL
  13. TORSEMIDE [Suspect]
     Active Substance: TORSEMIDE
     Indication: Product used for unknown indication
  14. TORSEMIDE [Suspect]
     Active Substance: TORSEMIDE
     Route: 065
  15. TORSEMIDE [Suspect]
     Active Substance: TORSEMIDE
     Route: 065
  16. TORSEMIDE [Suspect]
     Active Substance: TORSEMIDE

REACTIONS (7)
  - Cardiac failure [Unknown]
  - Myocarditis [Unknown]
  - Hypertrophic cardiomyopathy [Unknown]
  - Chronic kidney disease [Unknown]
  - Acute myocardial infarction [Unknown]
  - Liver disorder [Unknown]
  - Anaemia [Unknown]

NARRATIVE: CASE EVENT DATE: 20230201
